FAERS Safety Report 13341460 (Version 2)
Quarter: 2018Q2

REPORT INFORMATION
  Report Type: Spontaneous
  Country: US (occurrence: US)
  Receive Date: 20170316
  Receipt Date: 20180403
  Transmission Date: 20180711
  Serious: No
  Sender: FDA-Public Use
  Company Number: US-ROCHE-1846417

PATIENT
  Sex: Female

DRUGS (5)
  1. ERIVEDGE [Suspect]
     Active Substance: VISMODEGIB
     Indication: BASAL CELL CARCINOMA
     Route: 048
  2. GABAPENTIN. [Concomitant]
     Active Substance: GABAPENTIN
  3. ERIVEDGE [Suspect]
     Active Substance: VISMODEGIB
     Indication: SQUAMOUS CELL CARCINOMA OF SKIN
  4. BACLOFEN. [Concomitant]
     Active Substance: BACLOFEN
  5. ERIVEDGE [Suspect]
     Active Substance: VISMODEGIB
     Indication: SARCOIDOSIS
     Route: 048
     Dates: start: 20160913

REACTIONS (6)
  - Muscle spasms [Unknown]
  - Speech disorder [Unknown]
  - Balance disorder [Unknown]
  - Visual impairment [Unknown]
  - Memory impairment [Unknown]
  - Headache [Unknown]
